FAERS Safety Report 22060193 (Version 1)
Quarter: 2023Q1

REPORT INFORMATION
  Report Type: Spontaneous
  Country: US (occurrence: US)
  Receive Date: 20230303
  Receipt Date: 20230303
  Transmission Date: 20230418
  Serious: Yes (Disabling)
  Sender: FDA-Public Use
  Company Number: US-TEVA-2023-US-2861851

PATIENT
  Age: 60 Year
  Sex: Female
  Weight: 72.5 kg

DRUGS (14)
  1. DOCETAXEL [Suspect]
     Active Substance: DOCETAXEL
     Indication: Breast cancer female
     Dosage: CYCLES - 04 (09-DEC-2015; 31-DEC-2015 ; 21-JAN-2016, 11-FEB-2016), FREQUENCY - EVERY THREE WEEKS
     Route: 042
     Dates: start: 20151209, end: 20160211
  2. DOCETAXEL [Suspect]
     Active Substance: DOCETAXEL
     Indication: Breast cancer female
     Dosage: CYCLES- 04 (09-DEC-2015; 31-DEC-2015 ; 21-JAN-2016, 11-FEB-2016 ), FREQUENCY - EVERY THREE WEEKS
     Route: 042
     Dates: start: 20151209, end: 20160211
  3. DOCETAXEL [Suspect]
     Active Substance: DOCETAXEL
     Indication: Breast cancer female
     Dosage: CYCLES - 04 (09-DEC-2015; 31-DEC-2015 ; 21-JAN-2016, 11-FEB-2016 ), FREQUENCY - EVERY THREE WEEKS
     Route: 042
     Dates: start: 20151209, end: 20160211
  4. DOCETAXEL [Suspect]
     Active Substance: DOCETAXEL
     Dosage: NUMBER OF CYCLE - 04, FREQUENCY - EVERY THREE WEEKS
     Route: 042
     Dates: start: 20151209, end: 20160211
  5. TRASTUZUMAB [Suspect]
     Active Substance: TRASTUZUMAB
     Indication: Breast cancer female
     Dosage: CYCLE - 04,(09-DEC-2015 (660 MG); 31-DEC-2015 (660); 21-JAN-2016 (580 MG), 11-FEB-2016 (580 MG)) FRE
     Route: 042
     Dates: start: 20151209, end: 20160211
  6. TRASTUZUMAB [Suspect]
     Active Substance: TRASTUZUMAB
     Dosage: CYCLES 15 (11-JUL-2016;04-AUG-2016;25-AUG-2016; 15-SEP-2016;06-OCT-2016;27-OCT-2016; 17-NOV-2016; 08
     Route: 042
     Dates: start: 20160711, end: 20170412
  7. PERTUZUMAB [Suspect]
     Active Substance: PERTUZUMAB
     Indication: Breast cancer female
     Dosage: CYCLES - 04,(09-DEC-2015 (840 MG); 31-DEC-2015 (840); 21-JAN-2016 (420 MG), 11-FEB-2016 (420 MG)) FR
     Route: 042
     Dates: start: 20151209, end: 20160211
  8. ADRIAMYCIN [Suspect]
     Active Substance: DOXORUBICIN HYDROCHLORIDE
     Indication: Breast cancer female
     Dosage: CYCLES - 04,(11-APR-2016 (118 MG);02-MAY-2016(118 MG);23-MAY-2016(118 MG);15-JUN-2016 (114 MG)) FREQ
     Route: 042
     Dates: start: 20160411, end: 20160615
  9. CYCLOPHOSPHAMIDE [Suspect]
     Active Substance: CYCLOPHOSPHAMIDE
     Indication: Breast cancer female
     Dosage: CYCLES - 04,(11-APR-2016 (1176 MG) ;02-MAY-2016 (1176 MG) ;23-MAY-2016 (1176MG);15-JUN-2016 (1140MG
     Route: 042
     Dates: start: 20160411, end: 20160615
  10. METFORMIN [Concomitant]
     Active Substance: METFORMIN HYDROCHLORIDE
     Indication: Diabetes mellitus
     Route: 048
     Dates: start: 198401
  11. LEVOTHYROXINE [Concomitant]
     Active Substance: LEVOTHYROXINE
     Indication: Hypothyroidism
     Route: 048
     Dates: start: 198401
  12. LISINOPRIL [Concomitant]
     Active Substance: LISINOPRIL
     Indication: Essential hypertension
     Route: 048
     Dates: start: 198401
  13. SIMVASTATIN [Concomitant]
     Active Substance: SIMVASTATIN
     Indication: Dyslipidaemia
     Route: 065
     Dates: start: 198401
  14. BUPROPION [Concomitant]
     Active Substance: BUPROPION
     Indication: Depression
     Route: 065
     Dates: start: 198401

REACTIONS (25)
  - Alopecia areata [Not Recovered/Not Resolved]
  - Madarosis [Not Recovered/Not Resolved]
  - Hair texture abnormal [Not Recovered/Not Resolved]
  - Hair colour changes [Not Recovered/Not Resolved]
  - Diarrhoea [Recovered/Resolved]
  - Rash pruritic [Unknown]
  - Rash [Unknown]
  - Dermatitis acneiform [Recovered/Resolved]
  - Scar [Not Recovered/Not Resolved]
  - Dysphagia [Unknown]
  - Swelling [Unknown]
  - Asthenia [Unknown]
  - Fatigue [Recovering/Resolving]
  - Weight decreased [Unknown]
  - Nausea [Unknown]
  - Vomiting [Unknown]
  - Dyspepsia [Unknown]
  - Gastrooesophageal reflux disease [Unknown]
  - Constipation [Unknown]
  - Dyspnoea [Unknown]
  - Cognitive disorder [Recovering/Resolving]
  - Taste disorder [Unknown]
  - Myalgia [Unknown]
  - Arthralgia [Unknown]
  - Insomnia [Recovering/Resolving]

NARRATIVE: CASE EVENT DATE: 20151201
